FAERS Safety Report 9549101 (Version 3)
Quarter: 2013Q4

REPORT INFORMATION
  Report Type: Spontaneous
  Country: MY (occurrence: MY)
  Receive Date: 20130924
  Receipt Date: 20131001
  Transmission Date: 20140711
  Serious: Yes (Death, Other)
  Sender: FDA-Public Use
  Company Number: MY-SANOFI-AVENTIS-POMP-1002252

PATIENT
  Sex: Female
  Weight: 8.6 kg

DRUGS (5)
  1. MYOZYME [Suspect]
     Indication: GLYCOGEN STORAGE DISEASE TYPE II
     Dosage: 150 MG, Q2W
     Route: 042
     Dates: start: 20110309
  2. PROPRANOLOL [Concomitant]
     Indication: CARDIOMYOPATHY
     Dosage: 5 MG, UNK
     Dates: start: 20120608
  3. PROPRANOLOL [Concomitant]
     Indication: CARDIOMYOPATHY
     Dosage: 2.5 MG, UNK
  4. FUROSEMIDE [Concomitant]
     Indication: CARDIOMYOPATHY
     Dosage: 5 MG, UNK
     Dates: start: 20120604
  5. SPIRONOLACTONE [Concomitant]
     Indication: CARDIOMYOPATHY
     Dosage: 6.25 MG, QD
     Dates: start: 20120604

REACTIONS (3)
  - Disease progression [Fatal]
  - Respiratory tract infection [Unknown]
  - Weight gain poor [Unknown]
